FAERS Safety Report 17948231 (Version 1)
Quarter: 2020Q2

REPORT INFORMATION
  Report Type: Spontaneous
  Country: US (occurrence: US)
  Receive Date: 20200625
  Receipt Date: 20200625
  Transmission Date: 20200714
  Serious: Yes (Hospitalization)
  Sender: FDA-Public Use
  Company Number: None

PATIENT
  Age: 30 Year
  Sex: Female

DRUGS (10)
  1. CIPROFLOXACIN. [Concomitant]
     Active Substance: CIPROFLOXACIN
  2. IRON [Concomitant]
     Active Substance: IRON
  3. PREDNISONE. [Concomitant]
     Active Substance: PREDNISONE
  4. STELARA [Suspect]
     Active Substance: USTEKINUMAB
     Indication: CROHN^S DISEASE
     Dosage: ?          OTHER FREQUENCY:EVERY 8 WEEKS;?
     Route: 058
     Dates: start: 20200305
  5. ONDANSETRON [Concomitant]
     Active Substance: ONDANSETRON
  6. SINGULAIR [Concomitant]
     Active Substance: MONTELUKAST SODIUM
  7. FLUCONAZOLE. [Concomitant]
     Active Substance: FLUCONAZOLE
  8. HYDROCO/APAP [Concomitant]
     Active Substance: ACETAMINOPHEN\HYDROCODONE
  9. METRONIDAZOL [Concomitant]
     Active Substance: METRONIDAZOLE
  10. SMZ/TMP DS [Concomitant]
     Active Substance: SULFAMETHOXAZOLE\TRIMETHOPRIM

REACTIONS (1)
  - Surgery [None]

NARRATIVE: CASE EVENT DATE: 20200524
